FAERS Safety Report 5311115-8 (Version None)
Quarter: 2007Q2

REPORT INFORMATION
  Report Type: 
  Country: None (occurrence: None)
  Receive Date: 20070430
  Receipt Date: 20070418
  Transmission Date: 20071010
  Serious: Yes (Death)
  Sender: FDA-Public Use
  Company Number: JP-SANOFI-SYNTHELABO-A01200704356

PATIENT
  Age: 69 Year
  Sex: Female

DRUGS (3)
  1. LEUCOVORIN CALCIUM [Concomitant]
     Dosage: 100 MG/M2
     Route: 042
     Dates: start: 20070327, end: 20070328
  2. FLUOROURACIL [Suspect]
     Dosage: 400 MG/M2 BOLUS THEN 600 MG/M2 INFUSION
     Route: 042
     Dates: start: 20070327, end: 20070328
  3. OXALIPLATIN [Suspect]
     Indication: RECTAL CANCER
     Dosage: 85 MG/M2
     Route: 042
     Dates: start: 20070327, end: 20070327

REACTIONS (1)
  - INTERSTITIAL LUNG DISEASE [None]
